FAERS Safety Report 5973118-X (Version None)
Quarter: 2008Q4

REPORT INFORMATION
  Report Type: 
  Country: None (occurrence: None)
  Receive Date: 20081201
  Receipt Date: 20081124
  Transmission Date: 20090506
  Serious: Yes (Other)
  Sender: FDA-Public Use
  Company Number: US-AMGEN-US298510

PATIENT
  Sex: Male
  Weight: 21 kg

DRUGS (13)
  1. ARANESP [Suspect]
     Indication: RENAL FAILURE CHRONIC
     Route: 058
     Dates: start: 20060123
  2. SODIUM BICARBONATE [Concomitant]
     Route: 065
  3. KLOR-CON [Concomitant]
     Route: 065
  4. LEVOCARNITINE [Concomitant]
     Route: 065
  5. CYSTINE [Concomitant]
     Route: 065
  6. SYNTHROID [Concomitant]
     Route: 065
  7. ROCALTROL [Concomitant]
     Route: 065
  8. SALT SOLUTIONS [Concomitant]
     Route: 065
  9. MIRALAX [Concomitant]
     Route: 065
  10. PREVACID [Concomitant]
     Route: 065
  11. REGLAN [Concomitant]
     Route: 065
  12. UNSPECIFIED GROWTH HORMONE [Concomitant]
     Route: 065
  13. NORDITROPIN [Concomitant]
     Route: 065

REACTIONS (2)
  - ANAEMIA [None]
  - ANTI-ERYTHROPOIETIN ANTIBODY POSITIVE [None]
